FAERS Safety Report 5794398-X (Version None)
Quarter: 2008Q2

REPORT INFORMATION
  Report Type: 
  Country: None (occurrence: None)
  Receive Date: 20080625
  Receipt Date: 20080616
  Transmission Date: 20081010
  Serious: Yes (Other)
  Sender: FDA-Public Use
  Company Number: 2008AL006359

PATIENT
  Age: 73 Year
  Sex: Female

DRUGS (1)
  1. DIGOXIN [Suspect]
     Indication: CARDIAC FAILURE CONGESTIVE
     Dates: end: 20080501

REACTIONS (6)
  - BRONCHITIS [None]
  - CARDIOACTIVE DRUG LEVEL INCREASED [None]
  - FATIGUE [None]
  - MALAISE [None]
  - OVERDOSE [None]
  - SOMNOLENCE [None]
